FAERS Safety Report 7427150-X (Version None)
Quarter: 2011Q2

REPORT INFORMATION
  Report Type: 
  Country: None (occurrence: None)
  Receive Date: 20110420
  Receipt Date: 20110411
  Transmission Date: 20111010
  Serious: Yes (Death, Hospitalization, Disabling, Other)
  Sender: FDA-Public Use
  Company Number: DE-GENZYME-CAMP-1001408

PATIENT
  Age: 77 Year
  Sex: Female
  Weight: 70 kg

DRUGS (50)
  1. DOXORUBICIN [Suspect]
     Dosage: 80 MG, ONCE
     Route: 042
     Dates: start: 20090723
  2. DOXORUBICIN [Suspect]
     Dosage: 80 MG, ONCE
     Route: 042
     Dates: start: 20090820
  3. VINCRISTINE [Suspect]
     Dosage: 2 MG, ONCE
     Route: 042
     Dates: start: 20090721
  4. FILGRASTIM [Suspect]
     Dosage: UNK ON DAYS 4 THROUGH 15 OF COURSE 2
     Route: 058
     Dates: start: 20090707
  5. GANCICLOVIR [Concomitant]
     Indication: PRODUCT USED FOR UNKNOWN INDICATION
     Dosage: 300 MG, QD FOR 2 DAYS
     Route: 065
     Dates: start: 20090810, end: 20090811
  6. CAMPATH [Suspect]
     Indication: PERIPHERAL T-CELL LYMPHOMA UNSPECIFIED
     Dosage: 10 MG, QD
     Route: 058
     Dates: start: 20090623
  7. DOXORUBICIN [Suspect]
     Indication: PERIPHERAL T-CELL LYMPHOMA UNSPECIFIED
     Dosage: 80 MG, ONCE
     Route: 042
     Dates: start: 20090623
  8. DOXORUBICIN [Suspect]
     Dosage: 80 MG, ONCE
     Route: 042
     Dates: start: 20090707
  9. DOXORUBICIN [Suspect]
     Dosage: 80 MG, ONCE
     Route: 042
     Dates: start: 20090721
  10. PREDNISONE [Suspect]
     Dosage: 100 MG, QD FOR 5 DAYS
     Route: 048
     Dates: start: 20090623
  11. TORSEMIDE [Concomitant]
     Indication: PRODUCT USED FOR UNKNOWN INDICATION
     Dosage: 10 MG, UNK
     Route: 065
  12. CAMPATH [Suspect]
     Dosage: 20 MG, QD
     Route: 058
     Dates: start: 20090707
  13. CAMPATH [Suspect]
     Dosage: 30 MG, QD
     Route: 058
     Dates: start: 20090911, end: 20091022
  14. CYCLOPHOSPHAMIDE [Suspect]
     Dosage: 1200 MG, ONCE
     Route: 042
     Dates: start: 20090820
  15. DOXORUBICIN [Suspect]
     Dosage: 80 MG, ONCE
     Route: 042
     Dates: start: 20090806
  16. VINCRISTINE [Suspect]
     Dosage: 2 MG, ONCE
     Route: 042
     Dates: start: 20090723
  17. PREDNISONE [Suspect]
     Dosage: 100 MG, QD FOR 5 DAYS
     Route: 048
     Dates: start: 20090911
  18. TRIMETHOPRIM + SULFAMETHOXAZOLE [Concomitant]
     Indication: ANTIFUNGAL PROPHYLAXIS
     Dosage: 960 MG, BID
     Route: 048
     Dates: start: 20090701
  19. ANTIBIOTICS [Concomitant]
     Indication: ANTIVIRAL PROPHYLAXIS
     Dosage: UNK
  20. FORTECORTIN [Concomitant]
     Indication: PRODUCT USED FOR UNKNOWN INDICATION
     Dosage: 4 MG, UNK
     Route: 065
  21. CYCLOPHOSPHAMIDE [Suspect]
     Dosage: 1200 MG, ONCE
     Route: 042
     Dates: start: 20090908
  22. VINCRISTINE [Suspect]
     Indication: PERIPHERAL T-CELL LYMPHOMA UNSPECIFIED
     Dosage: 1 MG, ONCE
     Route: 042
     Dates: start: 20090615
  23. VINCRISTINE [Suspect]
     Dosage: 2 MG, ONCE
     Route: 042
     Dates: start: 20090707
  24. VINCRISTINE [Suspect]
     Dosage: 2 MG, ONCE
     Route: 042
     Dates: start: 20090806
  25. FILGRASTIM [Suspect]
     Dosage: UNK ON DAYS 4 THROUGH 13 OF COURSE 5
     Route: 058
     Dates: start: 20090820
  26. FILGRASTIM [Suspect]
     Dosage: UNK ON DAYS 4 THROUGH 12 OF COURSE 6
     Route: 058
     Dates: start: 20090908
  27. ENOXAPARIN SODIUM [Concomitant]
     Indication: DEEP VEIN THROMBOSIS
     Dosage: 40 MG, QD
     Route: 058
     Dates: start: 20090401, end: 20100415
  28. CYCLOPHOSPHAMIDE [Suspect]
     Indication: PERIPHERAL T-CELL LYMPHOMA UNSPECIFIED
     Dosage: 1250 MG, ONCE
     Route: 042
     Dates: start: 20090623
  29. CYCLOPHOSPHAMIDE [Suspect]
     Dosage: 1200 MG, ONCE
     Route: 042
     Dates: start: 20090707
  30. VINCRISTINE [Suspect]
     Dosage: 2 MG, ONCE
     Route: 042
     Dates: start: 20090820
  31. PREDNISONE [Suspect]
     Indication: PERIPHERAL T-CELL LYMPHOMA UNSPECIFIED
     Dosage: 100 MG, QD FOR 5 DAYS
     Route: 048
     Dates: start: 20090615
  32. PREDNISONE [Suspect]
     Dosage: 100 MG, QD FOR 5 DAYS
     Route: 048
     Dates: start: 20090707
  33. PREDNISONE [Suspect]
     Dosage: 100 MG, QD FOR 5 DAYS
     Route: 048
     Dates: start: 20090723
  34. GANCICLOVIR [Concomitant]
     Dosage: 300 MG, QD
     Route: 065
     Dates: start: 20090812, end: 20090817
  35. SPIRIVA [Concomitant]
  36. CYCLOPHOSPHAMIDE [Suspect]
     Dosage: 1200 MG, ONCE
     Route: 042
     Dates: start: 20090806
  37. DOXORUBICIN [Suspect]
     Dosage: 80 MG, ONCE
     Route: 042
     Dates: start: 20090908
  38. FILGRASTIM [Suspect]
     Indication: PERIPHERAL T-CELL LYMPHOMA UNSPECIFIED
     Dosage: UNK ON DAYS 4, 5, 6 OF COURSE 1
     Route: 058
     Dates: start: 20090623
  39. FILGRASTIM [Suspect]
     Dosage: UNK ON DAYS 4 THROUGH 8 AND DAY 13 OF COURSE 3
     Route: 058
     Dates: start: 20090723
  40. CAMPATH [Suspect]
     Dosage: 30 MG, BID
     Route: 058
     Dates: start: 20090723
  41. CYCLOPHOSPHAMIDE [Suspect]
     Dosage: 1200 MG, ONCE
     Route: 042
     Dates: start: 20090723
  42. FONDAPARINUX SODIUM [Concomitant]
     Indication: DEEP VEIN THROMBOSIS
     Dosage: 5 MG, QD
     Route: 058
     Dates: start: 20100505, end: 20100522
  43. METOPROLOL SUCCINATE [Concomitant]
     Indication: PRODUCT USED FOR UNKNOWN INDICATION
     Route: 065
  44. CAMPATH [Suspect]
     Dosage: 30 MG, QD
     Route: 058
     Dates: start: 20090806
  45. CYCLOPHOSPHAMIDE [Suspect]
     Dosage: 1200 MG, ONCE
     Route: 042
     Dates: start: 20090721
  46. VINCRISTINE [Suspect]
     Dosage: 2 MG, ONCE
     Route: 042
     Dates: start: 20090623
  47. PREDNISONE [Suspect]
     Dosage: 100 MG, QD FOR 5 DAYS
     Route: 048
     Dates: start: 20090806
  48. FILGRASTIM [Suspect]
     Dosage: UNK ON DAYS 6 + 7 AND DAYS 9 THROUGH 12 OF COURSE 4
     Route: 058
     Dates: start: 20090806
  49. FILGRASTIM [Suspect]
     Dosage: 30000 IE, QD
     Route: 058
     Dates: start: 20090911, end: 20090919
  50. PANTOZOL [Concomitant]
     Indication: PRODUCT USED FOR UNKNOWN INDICATION
     Dosage: 40 MG, UNK
     Route: 065

REACTIONS (13)
  - PYREXIA [None]
  - ABNORMAL BEHAVIOUR [None]
  - CYTOMEGALOVIRUS INFECTION [None]
  - EPSTEIN-BARR VIRUS ASSOCIATED LYMPHOPROLIFERATIVE DISORDER [None]
  - COGNITIVE DISORDER [None]
  - PULMONARY EMBOLISM [None]
  - PERIPHERAL SENSORY NEUROPATHY [None]
  - NEUTROPHIL TOXIC GRANULATION PRESENT [None]
  - DEEP VEIN THROMBOSIS [None]
  - URINARY INCONTINENCE [None]
  - KLEBSIELLA INFECTION [None]
  - TRAUMATIC HAEMATOMA [None]
  - ANAEMIA [None]
